FAERS Safety Report 6260214-5 (Version None)
Quarter: 2009Q3

REPORT INFORMATION
  Report Type: 
  Country: None (occurrence: None)
  Receive Date: 20090708
  Receipt Date: 20090304
  Transmission Date: 20100115
  Serious: Yes (Death, Hospitalization)
  Sender: FDA-Public Use
  Company Number: B0582608A

PATIENT
  Age: 76 Year
  Sex: Female
  Weight: 78 kg

DRUGS (7)
  1. OMACOR [Suspect]
     Dosage: 1000MG PER DAY
     Route: 048
     Dates: start: 20060429, end: 20060512
  2. BETA BLOCKER [Concomitant]
  3. ASPIRIN [Concomitant]
  4. CLOPIDOGREL [Concomitant]
  5. ACE INHIBITOR [Concomitant]
  6. DIGITALIS TAB [Concomitant]
  7. INSULIN [Concomitant]

REACTIONS (5)
  - ANAEMIA [None]
  - CONDITION AGGRAVATED [None]
  - DEATH [None]
  - DYSPNOEA [None]
  - HYPOTENSION [None]
